FAERS Safety Report 14474804 (Version 1)
Quarter: 2018Q1

REPORT INFORMATION
  Report Type: Spontaneous
  Country: KR (occurrence: KR)
  Receive Date: 20180201
  Receipt Date: 20180201
  Transmission Date: 20180509
  Serious: Yes (Death, Life-Threatening, Other)
  Sender: FDA-Public Use
  Company Number: KR-SA-2018SA020825

PATIENT
  Age: 73 Year
  Sex: Female

DRUGS (17)
  1. ASPIRIN. [Suspect]
     Active Substance: ASPIRIN
     Indication: MYOCARDIAL ISCHAEMIA
     Route: 048
  2. CLEXANE [Concomitant]
     Active Substance: ENOXAPARIN SODIUM
     Route: 065
  3. VANCOCIN CP [Concomitant]
     Route: 065
  4. PLAVIX [Suspect]
     Active Substance: CLOPIDOGREL BISULFATE
     Indication: MYOCARDIAL ISCHAEMIA
     Route: 048
  5. PLETAAL [Suspect]
     Active Substance: CILOSTAZOL
     Indication: MYOCARDIAL ISCHAEMIA
     Route: 048
     Dates: start: 20140619
  6. MICARDIS [Concomitant]
     Active Substance: TELMISARTAN
     Route: 065
  7. DOBUTAMINE HYDROCHLORIDE. [Concomitant]
     Active Substance: DOBUTAMINE HYDROCHLORIDE
     Route: 065
  8. VASOPRESSIN. [Concomitant]
     Active Substance: VASOPRESSIN
     Route: 065
  9. MIDAZOLAM [Concomitant]
     Active Substance: MIDAZOLAM HYDROCHLORIDE
     Route: 065
  10. MEROPEN [Concomitant]
     Active Substance: MEROPENEM
     Route: 065
  11. LANSTON LFDT [Concomitant]
     Active Substance: LANSOPRAZOLE
     Route: 065
  12. DILATREND [Concomitant]
     Active Substance: CARVEDILOL
     Route: 065
  13. LIPITOR [Concomitant]
     Active Substance: ATORVASTATIN CALCIUM
     Route: 065
  14. LASIX [Concomitant]
     Active Substance: FUROSEMIDE
     Route: 065
  15. DENOGAN [Concomitant]
     Active Substance: PROPACETAMOL HYDROCHLORIDE
     Route: 065
  16. BENDROFLUMETHIAZIDE/DIAZEPAM/METAMIZOLE SODIUM/ATROPINE METHYLBROMIDE [Concomitant]
     Route: 065
  17. CEFTRIAXONE. [Concomitant]
     Active Substance: CEFTRIAXONE
     Route: 065

REACTIONS (10)
  - Cardiogenic shock [Unknown]
  - Chest pain [Unknown]
  - Cardiac arrest [Unknown]
  - Blood pressure decreased [Unknown]
  - Multiple organ dysfunction syndrome [Fatal]
  - Pulmonary congestion [Unknown]
  - Haematoma [Unknown]
  - Pyrexia [Unknown]
  - Mental impairment [Unknown]
  - Leukocytosis [Unknown]

NARRATIVE: CASE EVENT DATE: 20140630
